FAERS Safety Report 4277552-8 (Version None)
Quarter: 2004Q1

REPORT INFORMATION
  Report Type: 
  Country: None (occurrence: None)
  Receive Date: 20040121
  Receipt Date: 20040106
  Transmission Date: 20041129
  Serious: Yes (Hospitalization, Other)
  Sender: FDA-Public Use
  Company Number: USA040155862

PATIENT
  Age: 50 Year
  Sex: Male
  Weight: 93 kg

DRUGS (9)
  1. NPH ILETIN II (PORK) [Suspect]
     Indication: DIABETES MELLITUS
     Dates: start: 19790101, end: 19931001
  2. REGULAR INSULIN [Suspect]
     Indication: DIABETES MELLITUS
     Dates: start: 19790101, end: 19911001
  3. LANTUS [Concomitant]
  4. NOVOLOG [Concomitant]
  5. ASPIRIN [Concomitant]
  6. PROCARDIA [Concomitant]
  7. LOTENSIN [Concomitant]
  8. PLAVIX [Concomitant]
  9. LIPITOR [Concomitant]

REACTIONS (12)
  - BALANCE DISORDER [None]
  - BLOOD CHOLESTEROL INCREASED [None]
  - BLOOD GLUCOSE DECREASED [None]
  - BLOOD GLUCOSE FLUCTUATION [None]
  - BODY TEMPERATURE INCREASED [None]
  - CEREBROVASCULAR ACCIDENT [None]
  - CHONDROPATHY [None]
  - EYE HAEMORRHAGE [None]
  - PROSTATE CANCER [None]
  - RHEUMATOID ARTHRITIS [None]
  - VISUAL ACUITY REDUCED [None]
  - WEIGHT INCREASED [None]
